FAERS Safety Report 8512860-3 (Version None)
Quarter: 2012Q3

REPORT INFORMATION
  Report Type: 
  Country: None (occurrence: None)
  Receive Date: 20120716
  Receipt Date: 20120702
  Transmission Date: 20120928
  Serious: No
  Sender: FDA-Public Use
  Company Number: US-ASTRAZENECA-2012SE44805

PATIENT
  Age: 40 Year
  Sex: Female

DRUGS (4)
  1. ATENOLOL [Concomitant]
     Indication: PALPITATIONS
  2. LORATADINE [Concomitant]
     Indication: MULTIPLE ALLERGIES
  3. LORAZEPAM [Concomitant]
     Indication: ANXIETY
  4. NEXIUM [Suspect]
     Route: 048

REACTIONS (3)
  - HEART RATE INCREASED [None]
  - MYALGIA [None]
  - RENAL PAIN [None]
